FAERS Safety Report 18881680 (Version 2)
Quarter: 2023Q2

REPORT INFORMATION
  Report Type: Spontaneous
  Country: CO (occurrence: CO)
  Receive Date: 20210212
  Receipt Date: 20230622
  Transmission Date: 20230722
  Serious: Yes (Hospitalization, Other)
  Sender: FDA-Public Use
  Company Number: CO-MLMSERVICE-20210204-2706696-1

PATIENT
  Age: 62 Year
  Sex: Male

DRUGS (8)
  1. MELPHALAN [Suspect]
     Active Substance: MELPHALAN
     Indication: Hodgkin^s disease
     Dosage: UNK, CONDITIONING REGIMEN
     Route: 065
     Dates: start: 2016
  2. METHYLPREDNISOLONE [Suspect]
     Active Substance: METHYLPREDNISOLONE
     Indication: Hodgkin^s disease
     Dosage: UNK CYCLICAL, 3 CYCLES SALVAGE CHEMOTHERAPY
     Route: 065
     Dates: start: 2016, end: 2016
  3. CARMUSTINE [Suspect]
     Active Substance: CARMUSTINE
     Indication: Hodgkin^s disease
     Dosage: UNK, CONDITIONING REGIMEN
     Route: 065
     Dates: start: 2016
  4. CISPLATIN [Suspect]
     Active Substance: CISPLATIN
     Indication: Hodgkin^s disease
     Dosage: UNK, CYCLICAL, 3 CYCLES, SALVAGE CHEMOTHERAPY
     Route: 065
     Dates: start: 2016, end: 2016
  5. CYTARABINE [Suspect]
     Active Substance: CYTARABINE
     Indication: Hodgkin^s disease
     Dosage: UNK, CONDITIONING REGIMEN OF BEAM
     Route: 065
     Dates: start: 2016
  6. CYTARABINE [Suspect]
     Active Substance: CYTARABINE
     Dosage: UNK, CYCLICAL, 3 CYCLES, SALVAGE CHEMOTHERAPY WITH THREE CYCLES OF ESHAP
     Route: 065
     Dates: start: 2016, end: 2016
  7. ETOPOSIDE [Suspect]
     Active Substance: ETOPOSIDE
     Indication: Hodgkin^s disease
     Dosage: UNK, CYCLICAL, 3 CYCLES, SALVAGE CHEMOTHERAPY
     Route: 065
     Dates: start: 2016, end: 2016
  8. ETOPOSIDE [Suspect]
     Active Substance: ETOPOSIDE
     Dosage: UNK, CONDITIONING REGIMEN OF BEAM
     Route: 065
     Dates: start: 2016

REACTIONS (3)
  - Pleural effusion [Unknown]
  - Infection reactivation [Recovered/Resolved]
  - American trypanosomiasis [Recovered/Resolved]

NARRATIVE: CASE EVENT DATE: 20160606
